FAERS Safety Report 5692527-X (Version None)
Quarter: 2008Q2

REPORT INFORMATION
  Report Type: 
  Country: None (occurrence: None)
  Receive Date: 20080328
  Receipt Date: 20080108
  Transmission Date: 20081010
  Serious: No
  Sender: FDA-Public Use
  Company Number: US-WYE-H02080208

PATIENT

DRUGS (1)
  1. TORISEL [Suspect]

REACTIONS (1)
  - FOLLICULITIS [None]
